FAERS Safety Report 8901056 (Version 1)
Quarter: 2012Q4

REPORT INFORMATION
  Report Type: 
  Country: TR (occurrence: TR)
  Receive Date: 20121109
  Receipt Date: 20121109
  Transmission Date: 20130627
  Serious: Yes (Hospitalization)
  Sender: FDA-Public Use
  Company Number: TR-US-EMD SERONO, INC.-7172676

PATIENT
  Age: 41 Year
  Sex: Female
  Weight: 65 kg

DRUGS (2)
  1. GONAL-F [Suspect]
     Indication: INFERTILITY
     Route: 058
     Dates: start: 20121101, end: 20121104
  2. MENOTROPHIN [Suspect]
     Indication: INFERTILITY
     Route: 030
     Dates: start: 20121101, end: 20121104

REACTIONS (1)
  - Pancreatitis acute [Recovering/Resolving]
